FAERS Safety Report 22674552 (Version 2)
Quarter: 2024Q2

REPORT INFORMATION
  Report Type: Spontaneous
  Country: US (occurrence: US)
  Receive Date: 20230705
  Receipt Date: 20240423
  Transmission Date: 20240716
  Serious: No
  Sender: FDA-Public Use
  Company Number: US-PFIZER INC-202300234995

PATIENT
  Age: 68 Year
  Sex: Female
  Weight: 61.69 kg

DRUGS (5)
  1. VIZIMPRO [Suspect]
     Active Substance: DACOMITINIB
     Indication: Lung cancer metastatic
     Dosage: 45 MG, 1X/DAY
     Route: 048
     Dates: start: 20230421, end: 20230503
  2. VIZIMPRO [Suspect]
     Active Substance: DACOMITINIB
     Dosage: 45 MG, 1X/DAY
     Route: 048
     Dates: start: 20230511, end: 20230517
  3. VIZIMPRO [Suspect]
     Active Substance: DACOMITINIB
     Dosage: 30 MG, 1X/DAY
     Route: 048
     Dates: start: 20230518, end: 20230524
  4. VIZIMPRO [Suspect]
     Active Substance: DACOMITINIB
     Dosage: 30 MG, 1X/DAY
     Route: 048
     Dates: start: 20230601, end: 20230607
  5. VIZIMPRO [Suspect]
     Active Substance: DACOMITINIB
     Dosage: 30 MG, 1X/DAY
     Route: 048
     Dates: start: 20230615, end: 20230621

REACTIONS (3)
  - Pruritus [Not Recovered/Not Resolved]
  - Skin fissures [Unknown]
  - Pain in extremity [Unknown]
